FAERS Safety Report 24738107 (Version 1)
Quarter: 2024Q4

REPORT INFORMATION
  Report Type: Spontaneous
  Country: IN (occurrence: IN)
  Receive Date: 20241216
  Receipt Date: 20241216
  Transmission Date: 20250115
  Serious: Yes (Hospitalization, Other)
  Sender: JUBILANT
  Company Number: IN-JUBILANT CADISTA PHARMACEUTICALS-2020JUB00118~

PATIENT
  Age: 45 Year
  Sex: Female

DRUGS (1)
  1. LEVOFLOXACIN [Suspect]
     Active Substance: LEVOFLOXACIN
     Indication: Cholecystectomy
     Dosage: 500 MG, 2 TIMES PER DAY
     Route: 048

REACTIONS (1)
  - Mania [Recovered/Resolved]
